FAERS Safety Report 6004278-2 (Version None)
Quarter: 2008Q4

REPORT INFORMATION
  Report Type: 
  Country: None (occurrence: None)
  Receive Date: 20081215
  Receipt Date: 20081215
  Transmission Date: 20090506
  Serious: Yes (Disabling)
  Sender: FDA-Public Use
  Company Number: None

PATIENT
  Sex: Female

DRUGS (2)
  1. WARFARIN SODIUM [Suspect]
     Indication: DEEP VEIN THROMBOSIS
     Dosage: 2.5 MG QODM THEN D/C'D PO
     Route: 048
     Dates: start: 20081119, end: 20081126
  2. WARFARIN SODIUM [Suspect]
     Indication: DEEP VEIN THROMBOSIS
     Dosage: 5 MG QOD THEN QD PO
     Route: 048
     Dates: start: 20081119, end: 20081210

REACTIONS (1)
  - INTERNATIONAL NORMALISED RATIO INCREASED [None]
